FAERS Safety Report 4727371-0 (Version None)
Quarter: 2005Q3

REPORT INFORMATION
  Report Type: 
  Country: None (occurrence: None)
  Receive Date: 20050728
  Receipt Date: 20050126
  Transmission Date: 20060218
  Serious: Yes (Hospitalization)
  Sender: FDA-Public Use
  Company Number: JP-MERCK-0501USA04479

PATIENT
  Age: 79 Year
  Sex: Male

DRUGS (9)
  1. PEPCID [Suspect]
     Route: 042
     Dates: start: 20050115, end: 20050127
  2. MAGNESIUM OXIDE [Concomitant]
     Route: 048
     Dates: start: 20041225, end: 20050126
  3. FERROMIA [Concomitant]
     Route: 048
     Dates: start: 20041225, end: 20050224
  4. PEPCID RPD [Concomitant]
     Route: 048
     Dates: start: 20050128, end: 20050224
  5. OMEPRAZOLE [Suspect]
     Indication: GASTRIC ULCER HAEMORRHAGE
     Route: 042
     Dates: start: 20041224, end: 20041224
  6. PARIET [Suspect]
     Indication: GASTRIC ULCER HAEMORRHAGE
     Route: 048
     Dates: start: 20041225, end: 20050115
  7. IOPAMIDOL [Suspect]
     Indication: GASTRIC ULCER HAEMORRHAGE
     Route: 042
     Dates: start: 20050113, end: 20050113
  8. ADONA [Concomitant]
     Route: 042
     Dates: start: 20041224, end: 20041226
  9. CRAVIT [Concomitant]
     Route: 048
     Dates: start: 20050114, end: 20050116

REACTIONS (5)
  - BETA 2 MICROGLOBULIN URINE INCREASED [None]
  - BLOOD CREATININE INCREASED [None]
  - CREATININE RENAL CLEARANCE DECREASED [None]
  - MALAISE [None]
  - PYREXIA [None]
